FAERS Safety Report 23526372 (Version 1)
Quarter: 2024Q1

REPORT INFORMATION
  Report Type: Other
  Country: CA (occurrence: CA)
  Receive Date: 20240215
  Receipt Date: 20240215
  Transmission Date: 20240409
  Serious: Yes (Death, Other)
  Sender: FDA-Public Use
  Company Number: CA-PFIZER INC-202400039551

PATIENT
  Age: 65 Year
  Sex: Male

DRUGS (1)
  1. METHOTREXATE SODIUM [Suspect]
     Active Substance: METHOTREXATE SODIUM
     Indication: Lymphoproliferative disorder
     Route: 037

REACTIONS (4)
  - Aspiration [Fatal]
  - Disease progression [Fatal]
  - Lymphoproliferative disorder [Fatal]
  - Product use in unapproved indication [Fatal]
